FAERS Safety Report 24789772 (Version 1)
Quarter: 2024Q4

REPORT INFORMATION
  Report Type: Spontaneous
  Country: NP (occurrence: NP)
  Receive Date: 20241230
  Receipt Date: 20241230
  Transmission Date: 20250115
  Serious: Yes (Hospitalization, Other)
  Sender: AZURITY PHARMACEUTICALS
  Company Number: NP-AZURITY PHARMACEUTICALS, INC.-AZR202412-001350

PATIENT
  Age: 25 Year
  Sex: Male

DRUGS (1)
  1. BACLOFEN [Suspect]
     Active Substance: BACLOFEN
     Indication: Product used for unknown indication
     Dosage: 10 TABLETS, 25 MG EACH (TOTAL 250MG)
     Route: 048

REACTIONS (5)
  - Metabolic alkalosis [Recovering/Resolving]
  - Altered state of consciousness [Recovering/Resolving]
  - Intentional overdose [Unknown]
  - Aggression [Recovering/Resolving]
  - Urinary incontinence [Recovering/Resolving]
